FAERS Safety Report 7679580-9 (Version None)
Quarter: 2011Q3

REPORT INFORMATION
  Report Type: 
  Country: None (occurrence: None)
  Receive Date: 20110809
  Receipt Date: 20110725
  Transmission Date: 20111222
  Serious: Yes (Hospitalization, Other)
  Sender: FDA-Public Use
  Company Number: IT-1187367

PATIENT
  Age: 65 Year
  Sex: Male

DRUGS (6)
  1. DEXAMETHASONE OPHTHALMIC OINTMENT [Suspect]
     Indication: CORNEAL ABSCESS
     Dosage: (OPHTHALMIC)
     Route: 047
  2. LEVOFLOXACIN [Suspect]
  3. TOBREX [Suspect]
     Indication: CORNEAL ABSCESS
     Dosage: (OPHTHALMIC)
     Route: 047
  4. KETOCONAZOLE [Suspect]
  5. AMPICILLIN [Suspect]
     Indication: CORNEAL ABSCESS
     Dosage: (OPHTHALMIC)
     Route: 047
  6. VORICONAZOLE [Suspect]
     Indication: ANTIFUNGAL TREATMENT
     Dosage: (OPHTHALMIC)
     Route: 047

REACTIONS (4)
  - HYPOPYON [None]
  - KERATOPATHY [None]
  - CONJUNCTIVAL HYPERAEMIA [None]
  - DRUG INEFFECTIVE [None]
